FAERS Safety Report 14393298 (Version 1)
Quarter: 2018Q1

REPORT INFORMATION
  Report Type: Spontaneous
  Country: US (occurrence: US)
  Receive Date: 20180114
  Receipt Date: 20180114
  Transmission Date: 20180509
  Serious: Yes (Hospitalization, Disabling, Other)
  Sender: FDA-Public Use
  Company Number: None

PATIENT
  Age: 85 Year
  Sex: Male
  Weight: 76.5 kg

DRUGS (8)
  1. TESTOSTERONE. [Concomitant]
     Active Substance: TESTOSTERONE
  2. VITAMIN D [Concomitant]
     Active Substance: CHOLECALCIFEROL
  3. ASPIRIN 81 [Concomitant]
     Active Substance: ASPIRIN
  4. ATENOLOL. [Concomitant]
     Active Substance: ATENOLOL
  5. ZETIA [Concomitant]
     Active Substance: EZETIMIBE
  6. ELIQUIS [Suspect]
     Active Substance: APIXABAN
     Indication: ATRIAL FIBRILLATION
     Dosage: ?          QUANTITY:1 TABLET(S);?
     Route: 048
     Dates: start: 20150710, end: 20171012
  7. NORVASC [Concomitant]
     Active Substance: AMLODIPINE BESYLATE
  8. SIMVASTATIN. [Concomitant]
     Active Substance: SIMVASTATIN

REACTIONS (3)
  - Cerebrovascular accident [None]
  - Transient ischaemic attack [None]
  - Drug ineffective [None]

NARRATIVE: CASE EVENT DATE: 20171010
